FAERS Safety Report 21513703 (Version 6)
Quarter: 2023Q1

REPORT INFORMATION
  Report Type: Report from Study
  Country: CN (occurrence: CN)
  Receive Date: 20221027
  Receipt Date: 20230117
  Transmission Date: 20230418
  Serious: Yes (Hospitalization)
  Sender: FDA-Public Use
  Company Number: CN-JNJFOC-20221042237

PATIENT
  Age: 63 Year
  Sex: Male
  Weight: 62 kg

DRUGS (11)
  1. DARATUMUMAB [Suspect]
     Active Substance: DARATUMUMAB
     Indication: Plasma cell myeloma
     Dosage: ALSO REPORTED AS 15 ML
     Route: 058
     Dates: start: 20221004, end: 20221117
  2. ACYCLOVIR [Concomitant]
     Active Substance: ACYCLOVIR
     Indication: Antiviral prophylaxis
     Route: 048
     Dates: start: 20221010, end: 20221017
  3. VITAMIN B1 [Concomitant]
     Active Substance: THIAMINE HYDROCHLORIDE
     Indication: Prophylaxis
     Route: 048
     Dates: start: 20221004, end: 20221017
  4. COBALTOMIN [Concomitant]
     Indication: Prophylaxis
     Route: 048
     Dates: start: 20221010, end: 20221017
  5. GRANULOCYTE COLONY STIMULATING FACTOR;MITUMPROTIMUT-T [Concomitant]
     Indication: Neutrophil count decreased
     Route: 058
     Dates: start: 20220903, end: 20220903
  6. POTASSIUM CITRATE [Concomitant]
     Active Substance: POTASSIUM CITRATE
     Indication: Nutritional supplementation
     Route: 048
     Dates: start: 20220831, end: 20220906
  7. AUGMENTIN [Concomitant]
     Active Substance: AMOXICILLIN\CLAVULANATE POTASSIUM
     Indication: Anti-infective therapy
     Route: 048
     Dates: start: 20221023
  8. AMOXICILLIN TRIHYDRATE [Concomitant]
     Active Substance: AMOXICILLIN
     Indication: Anti-infective therapy
     Route: 048
     Dates: start: 20221023
  9. METHYLCOBALAMIN [Concomitant]
     Active Substance: METHYLCOBALAMIN
     Indication: Prophylaxis
     Route: 048
     Dates: start: 20221004, end: 20221017
  10. SODIUM BICARBONATE [Concomitant]
     Active Substance: SODIUM BICARBONATE
     Indication: Prophylaxis
     Route: 048
     Dates: start: 20221020, end: 20221020
  11. SODIUM CHLORIDE [Concomitant]
     Active Substance: SODIUM CHLORIDE
     Indication: Prophylaxis
     Route: 048
     Dates: start: 20221020, end: 20221020

REACTIONS (2)
  - Febrile neutropenia [Recovered/Resolved]
  - Upper respiratory tract infection [Recovering/Resolving]

NARRATIVE: CASE EVENT DATE: 20221018
